FAERS Safety Report 5025805-8 (Version None)
Quarter: 2006Q2

REPORT INFORMATION
  Report Type: 
  Country: None (occurrence: None)
  Receive Date: 20060608
  Receipt Date: 20060519
  Transmission Date: 20061013
  Serious: Yes (Hospitalization)
  Sender: FDA-Public Use
  Company Number: PHNU2006DE01822

PATIENT
  Age: 67 Year
  Sex: Male
  Weight: 68 kg

DRUGS (1)
  1. LIORESAL [Suspect]
     Indication: MUSCLE SPASTICITY
     Dosage: INTRATHECAL
     Route: 037
     Dates: start: 20020601

REACTIONS (14)
  - BLOOD PRESSURE DECREASED [None]
  - BURNING SENSATION [None]
  - CATHETER RELATED COMPLICATION [None]
  - DIPLOPIA [None]
  - FALL [None]
  - HYPOTONIA [None]
  - MUSCLE SPASTICITY [None]
  - NAUSEA [None]
  - NEURALGIA [None]
  - OVERDOSE [None]
  - PAIN [None]
  - PARAESTHESIA [None]
  - SOMNOLENCE [None]
  - TACHYARRHYTHMIA [None]
